FAERS Safety Report 15115961 (Version 1)
Quarter: 2018Q3

REPORT INFORMATION
  Report Type: Spontaneous
  Country: BR (occurrence: BR)
  Receive Date: 20180706
  Receipt Date: 20180706
  Transmission Date: 20181010
  Serious: Yes (Hospitalization, Other)
  Sender: FDA-Public Use
  Company Number: BR-BRISTOL-MYERS SQUIBB COMPANY-BMS-2018-062709

PATIENT
  Sex: Male
  Weight: 67 kg

DRUGS (1)
  1. BARACLUDE [Suspect]
     Active Substance: ENTECAVIR
     Indication: PROPHYLAXIS
     Dosage: 0.5 MG, UNK
     Route: 048

REACTIONS (2)
  - Lymphoma [Unknown]
  - Product use in unapproved indication [Unknown]
